FAERS Safety Report 5726802-7 (Version None)
Quarter: 2008Q2

REPORT INFORMATION
  Report Type: 
  Country: None (occurrence: None)
  Receive Date: 20080502
  Receipt Date: 20080429
  Transmission Date: 20081010
  Serious: Yes (Hospitalization)
  Sender: FDA-Public Use
  Company Number: US-KINGPHARMUSA00001-K200800493

PATIENT

DRUGS (10)
  1. ALTACE [Suspect]
     Dosage: 5 MG, QD
     Route: 048
     Dates: start: 20060120
  2. BELOC ZOK [Interacting]
     Dosage: 190 MG, QD
     Route: 048
     Dates: start: 20060120, end: 20060206
  3. BELOC ZOK [Interacting]
     Dosage: 95 MG, QD
     Route: 048
     Dates: start: 20060207
  4. ESIDRIX [Suspect]
     Dosage: 25 MG, QD
     Route: 048
     Dates: start: 20060120
  5. TORSEMIDE [Suspect]
     Dosage: 20 MG, QD
     Route: 048
     Dates: start: 20060120
  6. SORTIS                             /01326101/ [Suspect]
     Dosage: 20 MG, QD
     Route: 065
     Dates: start: 20060120
  7. CIPRAMIL                           /00582602/ [Suspect]
     Dosage: 20 MG, QD
     Route: 048
     Dates: start: 20060128
  8. REMERGIL [Suspect]
     Dosage: 15 MG, QD
     Route: 048
     Dates: start: 20060127
  9. MARCUMAR [Concomitant]
     Dosage: UNK, PRN
     Dates: start: 20060120
  10. DIGIMERCK [Concomitant]
     Dosage: .07 MG, QD
     Route: 048
     Dates: start: 20060120

REACTIONS (4)
  - BRADYCARDIA [None]
  - DIZZINESS [None]
  - DRUG INTERACTION [None]
  - HYPOTENSION [None]
